FAERS Safety Report 8208835-4 (Version None)
Quarter: 2012Q1

REPORT INFORMATION
  Report Type: 
  Country: None (occurrence: None)
  Receive Date: 20120314
  Receipt Date: 20120308
  Transmission Date: 20120608
  Serious: Yes (Hospitalization, Other)
  Sender: FDA-Public Use
  Company Number: JP-PFIZER INC-2012062532

PATIENT
  Sex: Male

DRUGS (1)
  1. CORTRIL [Suspect]
     Dosage: 35 MG/DAY (15 MG IN THE MORNING AND 20 MG AFTER DINNER)

REACTIONS (3)
  - EYE DISORDER [None]
  - DIARRHOEA [None]
  - CONSTIPATION [None]
